FAERS Safety Report 21710190 (Version 1)
Quarter: 2022Q4

REPORT INFORMATION
  Report Type: Report from Study
  Country: FR (occurrence: FR)
  Receive Date: 20221211
  Receipt Date: 20221211
  Transmission Date: 20230113
  Serious: Yes (Congenital Anomaly, Other)
  Sender: FDA-Public Use
  Company Number: FR-002147023-NVSC2019FR064492

PATIENT
  Age: 26 Year
  Sex: Male

DRUGS (1)
  1. NILOTINIB [Suspect]
     Active Substance: NILOTINIB
     Indication: Chronic myeloid leukaemia
     Dosage: 300 MG, BID
     Route: 048
     Dates: start: 20141218

REACTIONS (4)
  - Paternal exposure before pregnancy [Recovered/Resolved]
  - Pregnancy of partner [Recovered/Resolved]
  - Paternal exposure during pregnancy [Recovered/Resolved]
  - Hypospadias [Recovered/Resolved]

NARRATIVE: CASE EVENT DATE: 20141218
